FAERS Safety Report 10491770 (Version 1)
Quarter: 2014Q4

REPORT INFORMATION
  Report Type: Spontaneous
  Country: US (occurrence: US)
  Receive Date: 20141002
  Receipt Date: 20141002
  Transmission Date: 20150528
  Serious: No
  Sender: FDA-Public Use
  Company Number: US-GLAXOSMITHKLINE-A1059277A

PATIENT
  Age: 53 Year
  Sex: Female
  Weight: 47.7 kg

DRUGS (2)
  1. ALBUTEROL. [Suspect]
     Active Substance: ALBUTEROL
     Indication: PRODUCT USED FOR UNKNOWN INDICATION
  2. ADVAIR HFA [Suspect]
     Active Substance: FLUTICASONE PROPIONATE\SALMETEROL XINAFOATE
     Indication: ASTHMA
     Dosage: 1PUFF TWICE PER DAY
     Route: 055
     Dates: start: 2003

REACTIONS (4)
  - Incorrect route of drug administration [Unknown]
  - Therapeutic response unexpected [Unknown]
  - Psychomotor hyperactivity [Unknown]
  - Drug administration error [Unknown]

NARRATIVE: CASE EVENT DATE: 2003
